FAERS Safety Report 18810588 (Version 1)
Quarter: 2021Q1

REPORT INFORMATION
  Report Type: Spontaneous
  Country: US (occurrence: US)
  Receive Date: 20210130
  Receipt Date: 20210130
  Transmission Date: 20210419
  Serious: No
  Sender: FDA-Public Use
  Company Number: US-DRREDDYS-USA/USA/21/0131046

PATIENT
  Age: 33 Year
  Sex: Female
  Weight: 60.75 kg

DRUGS (2)
  1. FLUCONAZOLE. [Suspect]
     Active Substance: FLUCONAZOLE
     Indication: PRODUCT USED FOR UNKNOWN INDICATION
     Route: 048
  2. FLUCONAZOLE. [Suspect]
     Active Substance: FLUCONAZOLE
     Route: 048

REACTIONS (9)
  - Ingrown hair [Unknown]
  - Abdominal distension [Unknown]
  - Product quality issue [Unknown]
  - Immune system disorder [Unknown]
  - Constipation [Unknown]
  - Drug ineffective [Unknown]
  - Vaginal odour [Unknown]
  - Fatigue [Unknown]
  - Vaginal discharge [Unknown]
